FAERS Safety Report 21144494 (Version 1)
Quarter: 2022Q3

REPORT INFORMATION
  Report Type: Spontaneous
  Country: US (occurrence: US)
  Receive Date: 20220728
  Receipt Date: 20220728
  Transmission Date: 20221027
  Serious: No
  Sender: FDA-Public Use
  Company Number: US-ELI_LILLY_AND_COMPANY-US202207012311

PATIENT
  Sex: Female

DRUGS (1)
  1. CYMBALTA [Suspect]
     Active Substance: DULOXETINE HYDROCHLORIDE
     Indication: Product used for unknown indication
     Dosage: 30 MG, BID
     Route: 065

REACTIONS (7)
  - Stress [Unknown]
  - Fibromyalgia [Unknown]
  - Tinnitus [Unknown]
  - Abdominal discomfort [Unknown]
  - Hallucination, visual [Unknown]
  - Muscle spasms [Unknown]
  - Hypertension [Unknown]
